FAERS Safety Report 26069777 (Version 1)
Quarter: 2025Q4

REPORT INFORMATION
  Report Type: Spontaneous
  Country: US (occurrence: US)
  Receive Date: 20251120
  Receipt Date: 20251120
  Transmission Date: 20260117
  Serious: No
  Sender: CATALYST PHARMA
  Company Number: US-CATALYST PHARMACEUTICALS-US-CATA-25-01270

PATIENT
  Sex: Male
  Weight: 24.036 kg

DRUGS (4)
  1. AGAMREE [Suspect]
     Active Substance: VAMOROLONE
     Indication: Duchenne muscular dystrophy
     Dosage: 3 ML ONCE A DAY
     Route: 048
     Dates: start: 20240927, end: 2024
  2. AGAMREE [Suspect]
     Active Substance: VAMOROLONE
     Dosage: 3.3 ML ONCE DAILY
     Route: 048
     Dates: start: 20241205
  3. MULTIVITAMIN GUMMY [Concomitant]
     Indication: Hypovitaminosis
     Dosage: ONE GUMMY DAILY
     Route: 048
  4. VITAMIN D [Concomitant]
     Active Substance: VITAMIN D NOS
     Indication: Hypovitaminosis
     Dosage: 5000 IU ONCE DAILY
     Route: 048

REACTIONS (2)
  - Vomiting [Recovered/Resolved]
  - Product dose omission issue [Unknown]

NARRATIVE: CASE EVENT DATE: 20240101
